FAERS Safety Report 6427214-3 (Version None)
Quarter: 2009Q4

REPORT INFORMATION
  Report Type: 
  Country: None (occurrence: None)
  Receive Date: 20091104
  Receipt Date: 20091028
  Transmission Date: 20100525
  Serious: Yes (Life-Threatening, Hospitalization, Congenital Anomaly)
  Sender: FDA-Public Use
  Company Number: A0682207A

PATIENT
  Sex: Female
  Weight: 2.3 kg

DRUGS (8)
  1. PAXIL [Suspect]
     Indication: ANXIETY
     Dosage: 30MG PER DAY
  2. PAROXETINE [Suspect]
     Indication: ANXIETY
     Dosage: 30MG PER DAY
     Dates: start: 20030918
  3. PAXIL CR [Suspect]
     Indication: ANXIETY
     Dosage: 25MG PER DAY
     Dates: start: 20021009
  4. AMOXICILLIN [Concomitant]
  5. VITAMIN TAB [Concomitant]
  6. DIFLUCAN [Concomitant]
  7. NASONEX [Concomitant]
  8. CEPHALEXIN [Concomitant]

REACTIONS (21)
  - AORTIC VALVE INCOMPETENCE [None]
  - ATRIAL SEPTAL DEFECT [None]
  - CARDIAC DISORDER [None]
  - CARDIAC FAILURE CONGESTIVE [None]
  - CARDIAC MURMUR [None]
  - CARDIOMEGALY [None]
  - COUGH [None]
  - DRUG EXPOSURE DURING PREGNANCY [None]
  - FAILURE TO THRIVE [None]
  - FALLOT'S TETRALOGY [None]
  - HEART DISEASE CONGENITAL [None]
  - LEFT ATRIAL DILATATION [None]
  - PERSISTENT FOETAL CIRCULATION [None]
  - PROCEDURAL PAIN [None]
  - PULMONARY OEDEMA [None]
  - PULMONARY VALVE STENOSIS [None]
  - SPEECH DISORDER DEVELOPMENTAL [None]
  - TRICUSPID VALVE INCOMPETENCE [None]
  - VENTRICULAR HYPERTROPHY [None]
  - VENTRICULAR SEPTAL DEFECT [None]
  - WEIGHT GAIN POOR [None]
